FAERS Safety Report 24858749 (Version 1)
Quarter: 2025Q1

REPORT INFORMATION
  Report Type: Spontaneous
  Country: US (occurrence: US)
  Receive Date: 20250118
  Receipt Date: 20250118
  Transmission Date: 20250408
  Serious: No
  Sender: AUROBINDO
  Company Number: US-AUROBINDO-AUR-APL-2024-018293

PATIENT
  Age: 22 Year
  Sex: Female
  Weight: 154.22 kg

DRUGS (1)
  1. LEVONORGESTREL [Suspect]
     Active Substance: LEVONORGESTREL
     Indication: Contraception
     Route: 048
     Dates: start: 20240401, end: 20240401

REACTIONS (4)
  - Oligomenorrhoea [Not Recovered/Not Resolved]
  - Fatigue [Not Recovered/Not Resolved]
  - Abdominal pain upper [Not Recovered/Not Resolved]
  - Extra dose administered [Unknown]

NARRATIVE: CASE EVENT DATE: 20240401
